FAERS Safety Report 18580764 (Version 4)
Quarter: 2021Q2

REPORT INFORMATION
  Report Type: Report from Study
  Country: US (occurrence: US)
  Receive Date: 20201204
  Receipt Date: 20210615
  Transmission Date: 20210717
  Serious: Yes (Other)
  Sender: FDA-Public Use
  Company Number: NVSC2020US317453

PATIENT
  Sex: Male

DRUGS (1)
  1. ENTRESTO [Suspect]
     Active Substance: SACUBITRIL\VALSARTAN
     Indication: PRODUCT USED FOR UNKNOWN INDICATION
     Dosage: 1 DF, BID (97/103MG)
     Route: 048
     Dates: start: 20201114

REACTIONS (6)
  - Blood potassium increased [Recovering/Resolving]
  - Blood pressure abnormal [Unknown]
  - Sarcoidosis [Unknown]
  - Myalgia [Recovering/Resolving]
  - Pulmonary oedema [Unknown]
  - Pollakiuria [Not Recovered/Not Resolved]
